FAERS Safety Report 17824167 (Version 2)
Quarter: 2020Q2

REPORT INFORMATION
  Report Type: Spontaneous
  Country: CA (occurrence: CA)
  Receive Date: 20200526
  Receipt Date: 20200623
  Transmission Date: 20200714
  Serious: Yes (Hospitalization)
  Sender: FDA-Public Use
  Company Number: CA-ROCHE-2604322

PATIENT
  Age: 3 Year
  Sex: Male

DRUGS (7)
  1. CYPROHEPTADINE. [Concomitant]
     Active Substance: CYPROHEPTADINE
     Route: 048
  2. SYNTHROID [Concomitant]
     Active Substance: LEVOTHYROXINE SODIUM
     Route: 048
  3. TOPAMAX [Concomitant]
     Active Substance: TOPIRAMATE
     Route: 065
  4. PREDNISOLONE. [Concomitant]
     Active Substance: PREDNISOLONE
     Route: 048
  5. KEPPRA [Concomitant]
     Active Substance: LEVETIRACETAM
     Route: 048
  6. SOMATROPIN. [Suspect]
     Active Substance: SOMATROPIN
     Indication: GROWTH HORMONE DEFICIENCY
     Dosage: THERAPY DURATION: 10.0 MONTHS
     Route: 058
  7. CLOBAZAM. [Concomitant]
     Active Substance: CLOBAZAM
     Route: 048

REACTIONS (8)
  - Therapeutic response unexpected [Unknown]
  - Hypoglycaemia [Unknown]
  - Intentional underdose [Unknown]
  - Disease recurrence [Unknown]
  - Cortisol deficiency [Unknown]
  - Hypothalamo-pituitary disorder [Unknown]
  - Hydrocephalus [Unknown]
  - Pre-existing condition improved [Unknown]
